FAERS Safety Report 6795694-X (Version None)
Quarter: 2010Q2

REPORT INFORMATION
  Report Type: 
  Country: None (occurrence: None)
  Receive Date: 20100622
  Receipt Date: 20100610
  Transmission Date: 20101027
  Serious: Yes (Hospitalization, Other)
  Sender: FDA-Public Use
  Company Number: JHP201000173

PATIENT
  Sex: Female
  Weight: 48 kg

DRUGS (2)
  1. ADRENALIN CHLORIDE SOLUTION (EPINEPHRINE) NASAL, 1 MG/ML [Suspect]
     Indication: WRONG DRUG ADMINISTERED
     Dosage: 4 ML, SINGLE SUBCUTANEOUS
     Route: 058
     Dates: start: 20100329, end: 20100329
  2. ANESTHETICS, GENERAL [Concomitant]

REACTIONS (5)
  - ACCIDENTAL EXPOSURE [None]
  - BLOOD PRESSURE INADEQUATELY CONTROLLED [None]
  - HYPERTENSION [None]
  - TACHYCARDIA [None]
  - WRONG DRUG ADMINISTERED [None]
